FAERS Safety Report 17101635 (Version 1)
Quarter: 2019Q4

REPORT INFORMATION
  Report Type: Spontaneous
  Country: GB (occurrence: GB)
  Receive Date: 20191202
  Receipt Date: 20191202
  Transmission Date: 20200122
  Serious: Yes (Other)
  Sender: FDA-Public Use
  Company Number: NVSC2019GB051872

PATIENT
  Age: 67 Year
  Sex: Male
  Weight: 66.2 kg

DRUGS (1)
  1. FRUSEMIDE SANDOZ [Suspect]
     Active Substance: FUROSEMIDE
     Indication: PRODUCT USED FOR UNKNOWN INDICATION
     Dosage: 40 MG
     Route: 065

REACTIONS (2)
  - Dyspnoea [Unknown]
  - Rales [Unknown]

NARRATIVE: CASE EVENT DATE: 20191018
